FAERS Safety Report 5697026-7 (Version None)
Quarter: 2008Q2

REPORT INFORMATION
  Report Type: 
  Country: None (occurrence: None)
  Receive Date: 20080408
  Receipt Date: 20070412
  Transmission Date: 20081010
  Serious: No
  Sender: FDA-Public Use
  Company Number: US-BAYER-US-2007-009972

PATIENT
  Age: 31 Year
  Sex: Female
  Weight: 57 kg

DRUGS (3)
  1. YASMIN [Suspect]
     Indication: ORAL CONTRACEPTION
     Route: 048
     Dates: start: 20041101
  2. VITAMINS [Concomitant]
  3. ANTIDEPRESSANTS [Concomitant]
     Indication: PAIN
     Route: 048
     Dates: start: 20050101

REACTIONS (5)
  - FATIGUE [None]
  - MUSCLE FATIGUE [None]
  - MYALGIA [None]
  - SLEEP DISORDER [None]
  - TENDERNESS [None]
